FAERS Safety Report 9238389 (Version 1)
Quarter: 2013Q2

REPORT INFORMATION
  Report Type: Spontaneous
  Country: US (occurrence: None)
  Receive Date: 20130417
  Receipt Date: 20130417
  Transmission Date: 20140414
  Serious: No
  Sender: FDA-Public Use
  Company Number: None

PATIENT
  Age: 84 Year
  Sex: Male

DRUGS (1)
  1. ZYTIGA [Suspect]
     Indication: ENDOMETRIOSIS
     Route: 048
     Dates: start: 20130319, end: 20130320

REACTIONS (4)
  - Pyrexia [None]
  - Decreased appetite [None]
  - Malaise [None]
  - Hypersomnia [None]
